FAERS Safety Report 20656338 (Version 1)
Quarter: 2022Q1

REPORT INFORMATION
  Report Type: Spontaneous
  Country: TW (occurrence: TW)
  Receive Date: 20220331
  Receipt Date: 20220331
  Transmission Date: 20220424
  Serious: Yes (Death)
  Sender: FDA-Public Use
  Company Number: TW-BEH-2022143299

PATIENT
  Age: 70 Year
  Sex: Male

DRUGS (2)
  1. HUMAN IMMUNOGLOBULIN G [Suspect]
     Active Substance: HUMAN IMMUNOGLOBULIN G
     Indication: Immune thrombocytopenia
     Dosage: 2 GRAM PER KG PER DAY FOR 2 DAYS
     Route: 042
  2. DEXAMETHASONE [Concomitant]
     Active Substance: DEXAMETHASONE
     Dosage: 20 MILLIGRAM
     Route: 065

REACTIONS (5)
  - Pulmonary oedema [Fatal]
  - Transfusion related complication [Fatal]
  - Cardiac arrest [Fatal]
  - No adverse event [Unknown]
  - Off label use [Unknown]
